FAERS Safety Report 25969354 (Version 2)
Quarter: 2025Q4

REPORT INFORMATION
  Report Type: Report from Study
  Country: JP (occurrence: JP)
  Receive Date: 20251028
  Receipt Date: 20251218
  Transmission Date: 20260117
  Serious: Yes (Hospitalization, Other)
  Sender: UCB
  Company Number: JP-UCBJ-CD202308090UCBPHAPROD

PATIENT
  Age: 4 Year
  Weight: 14.8 kg

DRUGS (17)
  1. FENFLURAMINE HYDROCHLORIDE [Suspect]
     Active Substance: FENFLURAMINE HYDROCHLORIDE
     Indication: Severe myoclonic epilepsy of infancy
     Dosage: 0.08 MILLIGRAM/KILOGRAM, 2X/DAY (BID)
     Route: 061
  2. FENFLURAMINE HYDROCHLORIDE [Suspect]
     Active Substance: FENFLURAMINE HYDROCHLORIDE
     Dosage: 0.045 MILLIGRAM/KILOGRAM, 2X/DAY (BID)
     Route: 061
  3. FENFLURAMINE HYDROCHLORIDE [Suspect]
     Active Substance: FENFLURAMINE HYDROCHLORIDE
     Dosage: 0.08 MILLIGRAM/KILOGRAM, 2X/DAY (BID)
     Route: 061
  4. FENFLURAMINE HYDROCHLORIDE [Suspect]
     Active Substance: FENFLURAMINE HYDROCHLORIDE
     Dosage: 0.16 MILLIGRAM/KILOGRAM, 2X/DAY (BID)
     Route: 061
  5. FENFLURAMINE HYDROCHLORIDE [Suspect]
     Active Substance: FENFLURAMINE HYDROCHLORIDE
     Dosage: 0.25 MILLIGRAM/KILOGRAM, 2X/DAY (BID)
     Route: 061
  6. FENFLURAMINE HYDROCHLORIDE [Suspect]
     Active Substance: FENFLURAMINE HYDROCHLORIDE
     Dosage: 0.35 MILLIGRAM/KILOGRAM, 2X/DAY (BID)
     Route: 061
  7. FENFLURAMINE HYDROCHLORIDE [Suspect]
     Active Substance: FENFLURAMINE HYDROCHLORIDE
     Dosage: UNK
     Route: 061
  8. TOPIRAMATE [Suspect]
     Active Substance: TOPIRAMATE
     Indication: Severe myoclonic epilepsy of infancy
     Dosage: 70 MILLIGRAM PER DAY
     Route: 061
  9. TOPIRAMATE [Suspect]
     Active Substance: TOPIRAMATE
     Dosage: 60 MILLIGRAM PER DAY
     Route: 061
  10. TOPIRAMATE [Suspect]
     Active Substance: TOPIRAMATE
     Dosage: 50 MILLIGRAM
     Route: 061
  11. TOPIRAMATE [Suspect]
     Active Substance: TOPIRAMATE
     Dosage: 60 MILLIGRAM
     Route: 061
  12. TOPIRAMATE [Suspect]
     Active Substance: TOPIRAMATE
     Dosage: 70 MILLIGRAM
     Route: 061
  13. DEPAKENE [Suspect]
     Active Substance: VALPROIC ACID
     Indication: Severe myoclonic epilepsy of infancy
     Dosage: 10 MILLILITER PER DAY
     Route: 061
  14. DEPAKENE [Suspect]
     Active Substance: VALPROIC ACID
     Dosage: 10 MILLILITER PER DAY
     Route: 061
  15. MYSTAN [Suspect]
     Active Substance: CLOBAZAM
     Indication: Severe myoclonic epilepsy of infancy
     Dosage: 8 MILLIGRAM PER DAY
     Route: 061
  16. ETHOSUXIMIDE [Concomitant]
     Active Substance: ETHOSUXIMIDE
     Indication: Severe myoclonic epilepsy of infancy
     Dosage: 0.3 GRAM PER DAY
     Route: 061
  17. ETHOSUXIMIDE [Concomitant]
     Active Substance: ETHOSUXIMIDE
     Dosage: 150 MILLIGRAM
     Route: 061

REACTIONS (6)
  - Respiratory failure [Recovering/Resolving]
  - Status epilepticus [Recovered/Resolved]
  - Decreased appetite [Recovering/Resolving]
  - Pyrexia [Unknown]
  - Off label use [Unknown]
  - Prescribed underdose [Unknown]
